FAERS Safety Report 24990906 (Version 2)
Quarter: 2025Q2

REPORT INFORMATION
  Report Type: Spontaneous
  Country: GB (occurrence: GB)
  Receive Date: 20250220
  Receipt Date: 20250401
  Transmission Date: 20250716
  Serious: Yes (Other)
  Sender: ALEXION PHARMACEUTICALS
  Company Number: GB-AstraZeneca-2002GB02693

PATIENT

DRUGS (4)
  1. NEXIUM [Suspect]
     Active Substance: ESOMEPRAZOLE MAGNESIUM
     Indication: Dyspepsia
     Dosage: 20 MILLIGRAM, QD
  2. ZYBAN [Suspect]
     Active Substance: BUPROPION HYDROCHLORIDE
     Indication: Ex-tobacco user
     Dosage: 150 MILLIGRAM, QD
  3. ZYBAN [Suspect]
     Active Substance: BUPROPION HYDROCHLORIDE
     Dosage: 150 MILLIGRAM, BID
  4. Logynon [Concomitant]
     Indication: Oral contraception
     Dosage: 1 DOSAGE FORM, QD

REACTIONS (5)
  - Poor quality sleep [Not Recovered/Not Resolved]
  - Nervousness [Not Recovered/Not Resolved]
  - Lethargy [Not Recovered/Not Resolved]
  - Tinnitus [Not Recovered/Not Resolved]
  - Feeling hot [Unknown]
